FAERS Safety Report 20920439 (Version 2)
Quarter: 2023Q1

REPORT INFORMATION
  Report Type: Spontaneous
  Country: US (occurrence: US)
  Receive Date: 20220606
  Receipt Date: 20230214
  Transmission Date: 20230417
  Serious: Yes (Other)
  Sender: FDA-Public Use
  Company Number: US-BRISTOL-MYERS SQUIBB COMPANY-2022-037702

PATIENT
  Age: 65 Year
  Sex: Male
  Weight: 127.91 kg

DRUGS (2)
  1. THALOMID [Suspect]
     Active Substance: THALIDOMIDE
     Indication: Angiodysplasia
     Dosage: FREQUENCY: DAILY
     Route: 048
     Dates: start: 20220201
  2. THALOMID [Suspect]
     Active Substance: THALIDOMIDE
     Route: 048

REACTIONS (3)
  - Dyspnoea [Recovering/Resolving]
  - Neuropathy peripheral [Unknown]
  - Off label use [Unknown]
